FAERS Safety Report 15827240 (Version 1)
Quarter: 2019Q1

REPORT INFORMATION
  Report Type: Other
  Country: GB (occurrence: GB)
  Receive Date: 20190115
  Receipt Date: 20190115
  Transmission Date: 20190417
  Serious: Yes (Other)
  Sender: FDA-Public Use
  Company Number: GB-HERITAGE PHARMACEUTICALS-2018HTG00286

PATIENT

DRUGS (15)
  1. PREGABALIN. [Concomitant]
     Active Substance: PREGABALIN
     Indication: NEURALGIA
     Dosage: 600 MG, 1X/DAY
     Dates: start: 20171107
  2. ZOMORPH [Concomitant]
     Active Substance: MORPHINE SULFATE
     Dosage: 10 MG, 2X/DAY, EVERY 12 HOURS
     Dates: start: 20171107
  3. CETRABEN EMOLLIENT CREAM [Concomitant]
     Dosage: 2 DF, 1X/DAY
     Dates: start: 20170305
  4. CETIRIZINE [Concomitant]
     Active Substance: CETIRIZINE HYDROCHLORIDE
     Indication: RHINITIS ALLERGIC
     Dosage: 10 MG, 1X/DAY AT NIGHT
     Dates: start: 20170305
  5. CASSIA [Concomitant]
     Dosage: TAKE 1 OR 2 AT NIGHT
     Dates: start: 20170428
  6. VITAMIN B COMPOUND STRONG [Concomitant]
     Dosage: 3 DF, 1X/DAY
     Dates: start: 20171107
  7. LIDOCAINE. [Concomitant]
     Active Substance: LIDOCAINE
     Indication: ARM AMPUTATION
     Dosage: THE PAINFUL AREA SHOULD BE COVERED WITH THE PATCH FOR UP TO 12 HOURS WITHIN A 24 HOUR PERIOD
     Route: 062
     Dates: start: 20170305
  8. PARACETAMOL [Concomitant]
     Active Substance: ACETAMINOPHEN
     Indication: CELLULITIS
     Dosage: 1000 MG, UP TO 4X/DAY
     Dates: start: 20170305
  9. CLENIL MODULITE [Concomitant]
     Active Substance: BECLOMETHASONE DIPROPIONATE
     Dosage: 4 DF, 100MCG/DOSE, 1X/DAY
     Route: 055
     Dates: start: 20171010
  10. FLUDROCORTISONE [Concomitant]
     Active Substance: FLUDROCORTISONE
     Dosage: 100 ?G, 1X/DAY
     Dates: start: 20171010
  11. FLUOXETINE [Suspect]
     Active Substance: FLUOXETINE HYDROCHLORIDE
     Indication: ANXIETY
     Dosage: 20 MG, 1X/DAY
     Route: 048
     Dates: start: 20171101, end: 20171109
  12. LACTULOSE. [Concomitant]
     Active Substance: LACTULOSE
     Dosage: 30 ML, 1X/DAY
     Route: 048
     Dates: start: 20170428
  13. SALBUTAMOL [Concomitant]
     Active Substance: ALBUTEROL
     Indication: ASTHMA
     Dosage: 100 MCG/DOSE; AS REQUIRED
     Route: 055
     Dates: start: 20171010
  14. THIAMINE. [Concomitant]
     Active Substance: THIAMINE
     Dosage: 1 DF, 1X/DAY
     Dates: start: 20170305
  15. METOCLOPRAMIDE. [Concomitant]
     Active Substance: METOCLOPRAMIDE
     Dosage: 3 DF, 1X/DAY
     Dates: start: 20170619

REACTIONS (3)
  - Nausea [Recovered/Resolved]
  - Swelling face [Recovered/Resolved]
  - Headache [Recovered/Resolved]

NARRATIVE: CASE EVENT DATE: 20171113
